FAERS Safety Report 10009864 (Version 2)
Quarter: 2014Q1

REPORT INFORMATION
  Report Type: Spontaneous
  Country: US (occurrence: US)
  Receive Date: 20140312
  Receipt Date: 20140312
  Transmission Date: 20141002
  Serious: Yes (Other)
  Sender: FDA-Public Use
  Company Number: US-INCYTE CORPORATION-2013IN000158

PATIENT
  Age: 71 Year
  Sex: Female
  Weight: 67.12 kg

DRUGS (13)
  1. JAKAFI [Suspect]
     Indication: MYELOFIBROSIS
     Dosage: 15 MG, BID
     Route: 048
     Dates: start: 20121222, end: 20130212
  2. JAKAFI [Suspect]
     Dosage: NOT SPECIFIED
  3. AMBIEN [Concomitant]
  4. ARIMIDEX [Concomitant]
  5. COZAAR [Concomitant]
  6. POTASSIUM [Concomitant]
  7. LEXAPRO [Concomitant]
  8. PLAVIX [Concomitant]
  9. ZOCOR [Concomitant]
  10. ZANTAC [Concomitant]
  11. OMEGA 3 [Concomitant]
  12. CALCIUM [Concomitant]
  13. ZETIA [Concomitant]

REACTIONS (3)
  - Haemoglobin decreased [Unknown]
  - Weight increased [Unknown]
  - Night sweats [Unknown]
